FAERS Safety Report 9109937 (Version 1)
Quarter: 2013Q1

REPORT INFORMATION
  Report Type: Spontaneous
  Country: US (occurrence: US)
  Receive Date: 20130222
  Receipt Date: 20130222
  Transmission Date: 20140127
  Serious: Yes (Life-Threatening, Hospitalization)
  Sender: FDA-Public Use
  Company Number: US-BRISTOL-MYERS SQUIBB COMPANY-17387184

PATIENT
  Age: 75 Year
  Sex: Male
  Weight: 79.36 kg

DRUGS (3)
  1. METFORMIN HCL [Suspect]
     Indication: DIABETES MELLITUS
     Dosage: 4 TIMES A DAY
     Route: 048
     Dates: start: 2004, end: 20121122
  2. AMARYL [Suspect]
     Indication: DIABETES MELLITUS
     Route: 048
     Dates: start: 2007, end: 20121122
  3. XELODA [Concomitant]
     Indication: PANCREATIC CARCINOMA METASTATIC
     Route: 048
     Dates: start: 20121018, end: 20121024

REACTIONS (3)
  - Hypoglycaemia [Recovered/Resolved]
  - Meningitis fungal [Unknown]
  - Diarrhoea [Recovered/Resolved]
